FAERS Safety Report 8357793-0 (Version None)
Quarter: 2012Q2

REPORT INFORMATION
  Report Type: 
  Country: None (occurrence: None)
  Receive Date: 20120514
  Receipt Date: 20110412
  Transmission Date: 20120825
  Serious: No
  Sender: FDA-Public Use
  Company Number: US-ALEXION-A201100511

PATIENT
  Sex: Male

DRUGS (6)
  1. ATIVAN [Concomitant]
     Indication: ANXIETY
     Dosage: 1 MG, PRN
  2. DEPAKOTE [Concomitant]
     Indication: CONVULSION
     Dosage: 500 MG, QD
  3. LACOSAMIDE [Concomitant]
     Indication: CONVULSION
     Dosage: 200 MG, BID
  4. MELATONINA [Concomitant]
     Indication: INSOMNIA
     Dosage: 6 MG, QD
  5. SOLIRIS [Suspect]
     Indication: PAROXYSMAL NOCTURNAL HAEMOGLOBINURIA
     Dosage: 900 MG, Q2W
     Route: 042
  6. METHYLIN [Concomitant]
     Indication: ATTENTION DEFICIT/HYPERACTIVITY DISORDER
     Dosage: 10 MG, BID

REACTIONS (3)
  - COUGH [None]
  - CALCINOSIS [None]
  - NASOPHARYNGITIS [None]
